FAERS Safety Report 24220785 (Version 1)
Quarter: 2024Q3

REPORT INFORMATION
  Report Type: Other
  Country: DE (occurrence: DE)
  Receive Date: 20240818
  Receipt Date: 20240818
  Transmission Date: 20241016
  Serious: Yes (Hospitalization, Congenital Anomaly)
  Sender: ORBION PHARMACEUTICALS
  Company Number: DE-OrBion Pharmaceuticals Private Limited-2160577

PATIENT
  Age: 4 Day

DRUGS (2)
  1. LEVETIRACETAM [Suspect]
     Active Substance: LEVETIRACETAM
     Indication: Foetal exposure during pregnancy
     Route: 064
  2. LACOSAMIDE [Suspect]
     Active Substance: LACOSAMIDE
     Route: 064

REACTIONS (4)
  - Atrial septal defect [Unknown]
  - Foetal exposure during pregnancy [Unknown]
  - Agitation neonatal [Unknown]
  - Hypercalcaemia [Unknown]
